FAERS Safety Report 25307521 (Version 1)
Quarter: 2025Q2

REPORT INFORMATION
  Report Type: Spontaneous
  Country: US (occurrence: US)
  Receive Date: 20250513
  Receipt Date: 20250513
  Transmission Date: 20250717
  Serious: Yes (Death, Hospitalization)
  Sender: AMGEN
  Company Number: US-AMGEN-USASP2025091437

PATIENT
  Age: 49 Year
  Sex: Male

DRUGS (10)
  1. DARBEPOETIN ALFA [Suspect]
     Active Substance: DARBEPOETIN ALFA
     Indication: Anaemia
     Dosage: 100 MICROGRAM, QD
     Route: 058
  2. TRANEXAMIC ACID [Concomitant]
     Active Substance: TRANEXAMIC ACID
  3. VITAMIN B12 [Concomitant]
     Active Substance: CYANOCOBALAMIN
  4. VITAMINS [Concomitant]
     Active Substance: VITAMINS
  5. ASCORBIC ACID [Concomitant]
     Active Substance: ASCORBIC ACID
     Dosage: 500 MILLIGRAM, QD
  6. FOLIC ACID [Concomitant]
     Active Substance: FOLIC ACID
     Dosage: 1 MILLIGRAM, QD
  7. IRON [Concomitant]
     Active Substance: IRON
     Dosage: 100 MILLIGRAM, QD
     Route: 040
  8. ALBUMIN HUMAN [Concomitant]
     Active Substance: ALBUMIN HUMAN
  9. NOREPINEPHRINE [Concomitant]
     Active Substance: NOREPINEPHRINE
  10. ENOXAPARIN [Concomitant]
     Active Substance: ENOXAPARIN

REACTIONS (4)
  - Death [Fatal]
  - Blood loss anaemia [Unknown]
  - Fat embolism syndrome [Unknown]
  - Off label use [Unknown]
